FAERS Safety Report 18953367 (Version 1)
Quarter: 2021Q1

REPORT INFORMATION
  Report Type: Spontaneous
  Country: US (occurrence: US)
  Receive Date: 20210301
  Receipt Date: 20210301
  Transmission Date: 20210420
  Serious: Yes (Hospitalization, Other)
  Sender: FDA-Public Use
  Company Number: US-ACCORD-217966

PATIENT
  Age: 63 Year
  Sex: Female

DRUGS (2)
  1. PREDNISONE. [Suspect]
     Active Substance: PREDNISONE
     Indication: PLEUROPERICARDITIS
  2. MYCOPHENOLATE MOFETIL/MYCOPHENOLATE SODIUM/MYCOPHENOLIC ACID [Suspect]
     Active Substance: MYCOPHENOLIC ACID
     Indication: PLEUROPERICARDITIS

REACTIONS (7)
  - Thrombocytopenia [Unknown]
  - Pulmonary embolism [Unknown]
  - Conjunctival hyperaemia [Unknown]
  - Off label use [Unknown]
  - Anaemia macrocytic [Unknown]
  - Meningitis histoplasma [Unknown]
  - Histoplasmosis disseminated [Unknown]
